FAERS Safety Report 22050082 (Version 1)
Quarter: 2023Q1

REPORT INFORMATION
  Report Type: Spontaneous
  Country: US (occurrence: US)
  Receive Date: 20230301
  Receipt Date: 20230301
  Transmission Date: 20230417
  Serious: Yes (Other)
  Sender: FDA-Public Use
  Company Number: US-drreddys-SPO/USA/23/0161534

PATIENT
  Age: 16 Year
  Sex: Female

DRUGS (1)
  1. TACROLIMUS [Suspect]
     Active Substance: TACROLIMUS
     Indication: Immunosuppressant drug therapy

REACTIONS (4)
  - Multiple organ dysfunction syndrome [Unknown]
  - Post transplant lymphoproliferative disorder [Unknown]
  - Pancytopenia [Unknown]
  - Diffuse large B-cell lymphoma [Unknown]
